FAERS Safety Report 19169810 (Version 1)
Quarter: 2021Q2

REPORT INFORMATION
  Report Type: Spontaneous
  Country: US (occurrence: US)
  Receive Date: 20210422
  Receipt Date: 20210422
  Transmission Date: 20210717
  Serious: Yes (Hospitalization, Other)
  Sender: FDA-Public Use
  Company Number: US-FRESENIUS KABI-FK202104075

PATIENT
  Age: 52 Year
  Sex: Female

DRUGS (4)
  1. CAPECITABINE. [Suspect]
     Active Substance: CAPECITABINE
     Dosage: SECOND CYCLE OF CAPOX WITHOUT DOSE REDUCTION
     Route: 065
  2. OXALIPLATIN (MANUFACTURER UNKNOWN) [Suspect]
     Active Substance: OXALIPLATIN
     Indication: COLON CANCER METASTATIC
     Dosage: IV; 130 MG/M2 ON DAY 1; EVERY 21 DAYS (CAPOX)
     Route: 042
  3. OXALIPLATIN (MANUFACTURER UNKNOWN) [Suspect]
     Active Substance: OXALIPLATIN
     Dosage: SECOND CYCLE OF CAPOX WITHOUT DOSE REDUCTION
     Route: 065
  4. CAPECITABINE. [Suspect]
     Active Substance: CAPECITABINE
     Indication: COLON CANCER METASTATIC
     Dosage: 1000 MG/M2, TWICE DAILY ON DAYS 1?14; EVERY 21 DAYS (CAPOX)
     Route: 048

REACTIONS (3)
  - Cold dysaesthesia [Recovered/Resolved]
  - Neurotoxicity [Recovered/Resolved]
  - Freezing phenomenon [Recovered/Resolved]
